FAERS Safety Report 5890982-3 (Version None)
Quarter: 2008Q3

REPORT INFORMATION
  Report Type: 
  Country: None (occurrence: None)
  Receive Date: 20080922
  Receipt Date: 20080918
  Transmission Date: 20090109
  Serious: Yes (Life-Threatening, Hospitalization, Other)
  Sender: FDA-Public Use
  Company Number: B0505089B

PATIENT
  Age: 55 Year
  Sex: Female
  Weight: 82 kg

DRUGS (1)
  1. TOPOTECAN [Suspect]
     Dosage: 2.44MG CYCLIC
     Route: 042
     Dates: start: 20070529, end: 20080218

REACTIONS (3)
  - METASTASES TO SPLEEN [None]
  - METASTATIC NEOPLASM [None]
  - TUMOUR MARKER INCREASED [None]
